FAERS Safety Report 6310374-2 (Version None)
Quarter: 2009Q3

REPORT INFORMATION
  Report Type: 
  Country: None (occurrence: None)
  Receive Date: 20090811
  Receipt Date: 20090803
  Transmission Date: 20100115
  Serious: Yes (Hospitalization)
  Sender: FDA-Public Use
  Company Number: CIP09000833

PATIENT
  Age: 64 Year
  Sex: Female
  Weight: 72.6 kg

DRUGS (4)
  1. ACTONEL [Suspect]
     Dosage: 150 MG, 1/MONTH, ORAL
     Route: 048
     Dates: start: 20081104, end: 20081104
  2. CLONAZEPAM [Concomitant]
  3. LABETALOL HCL [Concomitant]
  4. CHOLESTEROL- AND TRIGLYCERIDE REDUCERS [Concomitant]

REACTIONS (13)
  - ASTHENIA [None]
  - CHEST PAIN [None]
  - DIARRHOEA [None]
  - DYSPNOEA [None]
  - ELECTROCARDIOGRAM ST SEGMENT DEPRESSION [None]
  - HEADACHE [None]
  - HEART RATE INCREASED [None]
  - HYPERTENSION [None]
  - MASTICATION DISORDER [None]
  - MYALGIA [None]
  - MYOCARDIAL ISCHAEMIA [None]
  - NAUSEA [None]
  - VOMITING [None]
